FAERS Safety Report 24557413 (Version 1)
Quarter: 2024Q4

REPORT INFORMATION
  Report Type: Spontaneous
  Country: US (occurrence: US)
  Receive Date: 20241028
  Receipt Date: 20241028
  Transmission Date: 20250114
  Serious: Yes (Life-Threatening, Hospitalization)
  Sender: MYLAN
  Company Number: US-MYLANLABS-2024M1096874

PATIENT
  Age: 10 Month
  Sex: Female

DRUGS (21)
  1. VANCOMYCIN [Suspect]
     Active Substance: VANCOMYCIN
     Indication: Necrotising fasciitis
     Dosage: UNK
     Route: 042
  2. VANCOMYCIN [Suspect]
     Active Substance: VANCOMYCIN
     Indication: Pseudomonas infection
  3. TOBRAMYCIN [Suspect]
     Active Substance: TOBRAMYCIN\TOBRAMYCIN SULFATE
     Indication: Necrotising fasciitis
     Dosage: UNK
     Route: 042
  4. TOBRAMYCIN [Suspect]
     Active Substance: TOBRAMYCIN\TOBRAMYCIN SULFATE
     Indication: Pseudomonas infection
  5. TOBRAMYCIN [Suspect]
     Active Substance: TOBRAMYCIN\TOBRAMYCIN SULFATE
     Indication: Necrotising fasciitis
     Dosage: UNK
     Route: 061
  6. TOBRAMYCIN [Suspect]
     Active Substance: TOBRAMYCIN\TOBRAMYCIN SULFATE
     Indication: Pseudomonas infection
  7. CEPHALEXIN [Suspect]
     Active Substance: CEPHALEXIN
     Indication: Necrotising fasciitis
     Dosage: UNK
     Route: 065
  8. CEPHALEXIN [Suspect]
     Active Substance: CEPHALEXIN
     Indication: Pseudomonas infection
  9. CEFEPIME [Suspect]
     Active Substance: CEFEPIME HYDROCHLORIDE
     Indication: Necrotising fasciitis
     Dosage: UNK
     Route: 042
  10. CEFEPIME [Suspect]
     Active Substance: CEFEPIME HYDROCHLORIDE
     Indication: Pseudomonas infection
  11. CLINDAMYCIN [Suspect]
     Active Substance: CLINDAMYCIN
     Indication: Necrotising fasciitis
     Dosage: UNK
     Route: 042
  12. CLINDAMYCIN [Suspect]
     Active Substance: CLINDAMYCIN
     Indication: Pseudomonas infection
  13. GENTAMICIN [Suspect]
     Active Substance: GENTAMICIN
     Indication: Necrotising fasciitis
     Dosage: UNK
     Route: 042
  14. GENTAMICIN [Suspect]
     Active Substance: GENTAMICIN
     Indication: Pseudomonas infection
  15. PIPERACILLIN AND TAZOBACTAM [Suspect]
     Active Substance: PIPERACILLIN SODIUM\TAZOBACTAM SODIUM
     Indication: Necrotising fasciitis
     Dosage: UNK
     Route: 042
  16. PIPERACILLIN AND TAZOBACTAM [Suspect]
     Active Substance: PIPERACILLIN SODIUM\TAZOBACTAM SODIUM
     Indication: Pseudomonas infection
  17. CEFTAZIDIME [Suspect]
     Active Substance: CEFTAZIDIME
     Indication: Necrotising fasciitis
     Dosage: UNK (DROPS)
     Route: 061
  18. CEFTAZIDIME [Suspect]
     Active Substance: CEFTAZIDIME
     Indication: Pseudomonas infection
  19. PREDNISOLONE [Suspect]
     Active Substance: PREDNISOLONE
     Indication: Necrotising fasciitis
     Dosage: UNK (DROPS)
     Route: 061
  20. AMPHOTERICIN B [Suspect]
     Active Substance: AMPHOTERICIN B
     Indication: Necrotising fasciitis
     Dosage: UNK (DROPS)
     Route: 061
  21. AMPHOTERICIN B [Suspect]
     Active Substance: AMPHOTERICIN B
     Indication: Candida infection

REACTIONS (1)
  - Drug ineffective [Unknown]
